FAERS Safety Report 9125671 (Version 1)
Quarter: 2013Q1

REPORT INFORMATION
  Report Type: Spontaneous
  Country: FR (occurrence: FR)
  Receive Date: 20130121
  Receipt Date: 20130121
  Transmission Date: 20140127
  Serious: Yes (Hospitalization)
  Sender: FDA-Public Use
  Company Number: FR-SANOFI-AVENTIS-2013SA003223

PATIENT
  Age: 5 Day
  Sex: Male

DRUGS (7)
  1. CORDARONE [Suspect]
     Indication: SUPRAVENTRICULAR TACHYCARDIA
     Route: 048
     Dates: start: 20121117, end: 20121118
  2. CORDARONE [Suspect]
     Indication: SUPRAVENTRICULAR TACHYCARDIA
     Route: 048
     Dates: start: 20121119, end: 20121215
  3. CLAFORAN [Suspect]
     Indication: INFECTION
     Route: 042
     Dates: start: 20121114, end: 20121117
  4. HYPNOVEL [Suspect]
     Indication: SEDATION
     Route: 042
     Dates: start: 20121116, end: 20121117
  5. SUFENTA [Suspect]
     Indication: SEDATION
     Route: 042
     Dates: start: 20121116, end: 20121117
  6. AMOXICILLIN [Suspect]
     Indication: INFECTION
     Route: 042
     Dates: start: 20121114, end: 20121117
  7. GENTAMICIN [Suspect]
     Indication: INFECTION
     Route: 042
     Dates: start: 20121114, end: 20121117

REACTIONS (2)
  - Abdominal distension [Recovering/Resolving]
  - Necrotising colitis [Recovering/Resolving]
